APPROVED DRUG PRODUCT: NITROPRESS
Active Ingredient: SODIUM NITROPRUSSIDE
Strength: 50MG/VIAL **Federal Register determination that product was not discontinued or withdrawn for safety or effectiveness reasons**
Dosage Form/Route: INJECTABLE;INJECTION
Application: N018450 | Product #001
Applicant: ABBVIE INC
Approved: Approved Prior to Jan 1, 1982 | RLD: Yes | RS: No | Type: DISCN